FAERS Safety Report 5399837-4 (Version None)
Quarter: 2007Q3

REPORT INFORMATION
  Report Type: 
  Country: None (occurrence: None)
  Receive Date: 20070724
  Receipt Date: 20070712
  Transmission Date: 20080115
  Serious: No
  Sender: FDA-Public Use
  Company Number: 2007-161198-NL

PATIENT
  Age: 83 Year
  Sex: Female

DRUGS (7)
  1. MIRTAZAPINE [Suspect]
     Dosage: 15 MG/30 MG ORAL
     Route: 048
     Dates: start: 20070620, end: 20070705
  2. ASPIRIN [Concomitant]
  3. BENDROFLUMETHIAZIDE [Concomitant]
  4. LANSOPRAZOLE [Concomitant]
  5. MOMETASONE FUROATE [Concomitant]
  6. PARACETAMOL [Concomitant]
  7. CITALOPRAM HYDROBROMIDE [Concomitant]

REACTIONS (5)
  - ARTHRALGIA [None]
  - HYPERHIDROSIS [None]
  - INSOMNIA [None]
  - OEDEMA [None]
  - RESTLESS LEGS SYNDROME [None]
